FAERS Safety Report 7157362-4 (Version None)
Quarter: 2010Q4

REPORT INFORMATION
  Report Type: 
  Country: None (occurrence: None)
  Receive Date: 20101214
  Receipt Date: 20101130
  Transmission Date: 20110411
  Serious: No
  Sender: FDA-Public Use
  Company Number: US-PFIZER INC-2010161357

PATIENT
  Sex: Female
  Weight: 57.596 kg

DRUGS (2)
  1. ESTRING [Suspect]
     Indication: VULVOVAGINAL DRYNESS
     Dosage: 2 MG, UNK
     Route: 067
     Dates: start: 20090501, end: 20101101
  2. ESTRING [Suspect]
     Indication: CYSTITIS

REACTIONS (1)
  - VULVOVAGINAL DISCOMFORT [None]
